FAERS Safety Report 5144861-X (Version None)
Quarter: 2006Q4

REPORT INFORMATION
  Report Type: 
  Country: None (occurrence: None)
  Receive Date: 20061107
  Receipt Date: 20060308
  Transmission Date: 20070319
  Serious: Yes (Death)
  Sender: FDA-Public Use
  Company Number: US-ELI_LILLY_AND_COMPANY-US200606002491

PATIENT
  Age: 54 Year
  Sex: Male
  Weight: 90.702 kg

DRUGS (4)
  1. ZYPREXA [Suspect]
     Indication: DEPRESSION
     Dosage: 15 MG, UNK
     Dates: start: 20000801, end: 20051101
  2. ZYPREXA [Suspect]
     Dosage: 20 MG, UNK
  3. DOXEPIN HCL [Concomitant]
     Dates: start: 20021201
  4. FLUOXETINE                              /N/A/ [Concomitant]
     Dates: start: 20021201

REACTIONS (2)
  - DEATH [None]
  - DIABETES MELLITUS [None]
